FAERS Safety Report 9915632 (Version 1)
Quarter: 2014Q1

REPORT INFORMATION
  Report Type: Spontaneous
  Country: GB (occurrence: None)
  Receive Date: 20140218
  Receipt Date: 20140218
  Transmission Date: 20141002
  Serious: Yes (Disabling)
  Sender: FDA-Public Use
  Company Number: AUR-APL-2014-01530

PATIENT
  Age: 35 Year
  Sex: Male
  Weight: 55 kg

DRUGS (6)
  1. LAMOTRIGINE (LAMOTRIGINE) [Suspect]
     Indication: AFFECTIVE DISORDER
     Route: 048
     Dates: start: 20131220, end: 20140120
  2. BISOPROLOL (BISOPROLOL) [Concomitant]
  3. DIAZEPAM (DIAZEPAM) [Concomitant]
  4. LITHIUM CARBONATE (LITHIUM CARNONATE) [Concomitant]
  5. OMEPRAZOLE (OMEPRAZOLE) [Concomitant]
  6. QUETIAPINE (QUETIAPINE) [Concomitant]

REACTIONS (6)
  - Decreased appetite [None]
  - Stomatitis [None]
  - Rash [None]
  - Agitation [None]
  - Paranoia [None]
  - Tachycardia [None]
